FAERS Safety Report 15268814 (Version 14)
Quarter: 2024Q3

REPORT INFORMATION
  Report Type: Report from Study
  Country: DE (occurrence: None)
  Receive Date: 20180813
  Receipt Date: 20240703
  Transmission Date: 20241017
  Serious: Yes (Death, Life-Threatening, Hospitalization, Other)
  Sender: ORION
  Company Number: DE-ORION CORPORATION ORION PHARMA-ENTC2009-0251

PATIENT
  Age: 68 Year
  Sex: Female
  Weight: 53 kg

DRUGS (50)
  1. STALEVO [Suspect]
     Active Substance: CARBIDOPA\ENTACAPONE\LEVODOPA
     Indication: Product used for unknown indication
  2. STALEVO [Suspect]
     Active Substance: CARBIDOPA\ENTACAPONE\LEVODOPA
     Dates: start: 20090111
  3. STALEVO [Suspect]
     Active Substance: CARBIDOPA\ENTACAPONE\LEVODOPA
  4. STALEVO [Suspect]
     Active Substance: CARBIDOPA\ENTACAPONE\LEVODOPA
     Dosage: 6X100MG
     Dates: end: 200909
  5. STALEVO [Suspect]
     Active Substance: CARBIDOPA\ENTACAPONE\LEVODOPA
  6. STALEVO [Suspect]
     Active Substance: CARBIDOPA\ENTACAPONE\LEVODOPA
  7. STALEVO [Suspect]
     Active Substance: CARBIDOPA\ENTACAPONE\LEVODOPA
  8. STALEVO [Suspect]
     Active Substance: CARBIDOPA\ENTACAPONE\LEVODOPA
  9. VALPROIC ACID [Suspect]
     Active Substance: VALPROIC ACID
     Indication: Product used for unknown indication
     Dates: end: 200901
  10. VALPROIC ACID [Suspect]
     Active Substance: VALPROIC ACID
  11. VALPROIC ACID [Suspect]
     Active Substance: VALPROIC ACID
  12. VALPROIC ACID [Suspect]
     Active Substance: VALPROIC ACID
  13. VALPROIC ACID [Suspect]
     Active Substance: VALPROIC ACID
  14. CLOZAPINE [Suspect]
     Active Substance: CLOZAPINE
     Indication: Product used for unknown indication
     Dosage: 0.5 DF, Q3W (25 MG (0.5 TABLET AT 7+9+12+14+19 O^ CLOCK)
  15. CLOZAPINE [Suspect]
     Active Substance: CLOZAPINE
  16. CLOZAPINE [Suspect]
     Active Substance: CLOZAPINE
     Dates: start: 20090111
  17. CLOZAPINE [Suspect]
     Active Substance: CLOZAPINE
  18. CLOZAPINE [Suspect]
     Active Substance: CLOZAPINE
  19. EXELON [Suspect]
     Active Substance: RIVASTIGMINE TARTRATE
     Indication: Parkinson^s disease
     Dosage: 3 MG BID
  20. EXELON [Suspect]
     Active Substance: RIVASTIGMINE TARTRATE
     Dosage: 3 MG BID
  21. DOMPERIDONE [Suspect]
     Active Substance: DOMPERIDONE
     Indication: Product used for unknown indication
  22. DOMPERIDONE [Suspect]
     Active Substance: DOMPERIDONE
  23. OMEPRAZOLE [Suspect]
     Active Substance: OMEPRAZOLE
     Indication: Premedication
  24. OMEPRAZOLE [Suspect]
     Active Substance: OMEPRAZOLE
  25. PIPAMPERONE [Suspect]
     Active Substance: PIPAMPERONE
     Indication: Product used for unknown indication
  26. CARBIDOPA\LEVODOPA [Suspect]
     Active Substance: CARBIDOPA\LEVODOPA
     Indication: Premedication
  27. CARBIDOPA\LEVODOPA [Suspect]
     Active Substance: CARBIDOPA\LEVODOPA
  28. CLOMETHIAZOLE [Suspect]
     Active Substance: CLOMETHIAZOLE
     Indication: Premedication
     Dosage: 1 OT
     Dates: start: 2009
  29. CLOMETHIAZOLE [Suspect]
     Active Substance: CLOMETHIAZOLE
     Dosage: 1 OT, QD
  30. RIVASTIGMINE [Suspect]
     Active Substance: RIVASTIGMINE
     Indication: Parkinson^s disease
  31. RIVASTIGMINE [Suspect]
     Active Substance: RIVASTIGMINE
     Dosage: 1 MG, QD 3-1.5-1.5 MG
  32. RIVASTIGMINE [Suspect]
     Active Substance: RIVASTIGMINE
  33. LEVODOPA [Suspect]
     Active Substance: LEVODOPA
     Indication: Premedication
  34. LEVODOPA [Suspect]
     Active Substance: LEVODOPA
  35. LEVODOPA [Suspect]
     Active Substance: LEVODOPA
  36. CARBIDOPA [Suspect]
     Active Substance: CARBIDOPA
     Indication: Product used for unknown indication
  37. CARBIDOPA [Suspect]
     Active Substance: CARBIDOPA
  38. CARBIDOPA [Suspect]
     Active Substance: CARBIDOPA
  39. TRAMADOL [Concomitant]
     Active Substance: TRAMADOL\TRAMADOL HYDROCHLORIDE
  40. NEOSTIGMINE METHYLSULFATE [Concomitant]
     Active Substance: NEOSTIGMINE METHYLSULFATE
  41. LACTULOSE [Concomitant]
     Active Substance: LACTULOSE
  42. MOVICOL [Concomitant]
     Active Substance: POLYETHYLENE GLYCOL 3350\POTASSIUM CHLORIDE\SODIUM BICARBONATE\SODIUM CHLORIDE
  43. CARBIDOPA\LEVODOPA [Concomitant]
     Active Substance: CARBIDOPA\LEVODOPA
  44. METOCLOPRAMIDE [Concomitant]
     Active Substance: METOCLOPRAMIDE
  45. VALPROIC ACID [Concomitant]
     Active Substance: VALPROIC ACID
     Dates: start: 20090111
  46. VALPROIC ACID [Concomitant]
     Active Substance: VALPROIC ACID
  47. KALIUM [POTASSIUM ADIPATE] [Concomitant]
  48. CARBIDOPA\LEVODOPA [Concomitant]
     Active Substance: CARBIDOPA\LEVODOPA
  49. METAMIZOLE [Concomitant]
     Active Substance: METAMIZOLE
  50. METAMIZOLE [Concomitant]
     Active Substance: METAMIZOLE

REACTIONS (13)
  - Subileus [Fatal]
  - Pancreatitis [Fatal]
  - Ileus [Fatal]
  - Faecaloma [Fatal]
  - White blood cell count increased [Fatal]
  - Urinary retention [Fatal]
  - Gastrointestinal sounds abnormal [Fatal]
  - Vascular encephalopathy [Fatal]
  - Dementia [Fatal]
  - Abdominal distension [Fatal]
  - Abdominal tenderness [Fatal]
  - Abdominal pain [Fatal]
  - Nausea [Fatal]

NARRATIVE: CASE EVENT DATE: 20090101
